FAERS Safety Report 11154362 (Version 2)
Quarter: 2016Q2

REPORT INFORMATION
  Report Type: Spontaneous
  Country: US (occurrence: US)
  Receive Date: 20150602
  Receipt Date: 20160601
  Transmission Date: 20160815
  Serious: No
  Sender: FDA-Public Use
  Company Number: US-NOVEN PHARMACEUTICALS, INC.-14US013019

PATIENT

DRUGS (7)
  1. DAYTRANA [Suspect]
     Active Substance: METHYLPHENIDATE
     Indication: DISTURBANCE IN ATTENTION
     Dosage: 10 MG, DAILY
     Route: 062
     Dates: start: 201410
  2. CITRULLINE [Concomitant]
     Active Substance: CITRULLINE
  3. ZOLOFT [Concomitant]
     Active Substance: SERTRALINE HYDROCHLORIDE
     Indication: ANXIETY
  4. WELLBUTRIN [Concomitant]
     Active Substance: BUPROPION HYDROCHLORIDE
     Indication: DEPRESSION
     Dosage: 200 MG, DAILY
     Route: 048
     Dates: start: 2011
  5. WELLBUTRIN [Concomitant]
     Active Substance: BUPROPION HYDROCHLORIDE
     Indication: ANXIETY
  6. ZOLOFT [Concomitant]
     Active Substance: SERTRALINE HYDROCHLORIDE
     Indication: DEPRESSION
     Dosage: 75 MG, DAILY
     Route: 048
     Dates: start: 2011
  7. DAYTRANA [Suspect]
     Active Substance: METHYLPHENIDATE
     Indication: ATTENTION DEFICIT/HYPERACTIVITY DISORDER
     Dosage: 10 MG, UNKNOWN
     Route: 062
     Dates: start: 20160304

REACTIONS (12)
  - Application site pain [Not Recovered/Not Resolved]
  - Application site swelling [Not Recovered/Not Resolved]
  - Drug prescribing error [Not Recovered/Not Resolved]
  - Application site erythema [Not Recovered/Not Resolved]
  - Feeling jittery [Recovered/Resolved]
  - Application site pruritus [Not Recovered/Not Resolved]
  - Headache [Recovered/Resolved]
  - Off label use [Not Recovered/Not Resolved]
  - Incorrect drug administration duration [Recovered/Resolved]
  - Application site warmth [Not Recovered/Not Resolved]
  - Wrong technique in product usage process [None]
  - Anxiety [Recovered/Resolved]

NARRATIVE: CASE EVENT DATE: 201410
